FAERS Safety Report 8205760-X (Version None)
Quarter: 2012Q1

REPORT INFORMATION
  Report Type: 
  Country: None (occurrence: None)
  Receive Date: 20120313
  Receipt Date: 20120307
  Transmission Date: 20120608
  Serious: Yes (Other)
  Sender: FDA-Public Use
  Company Number: FR-PFIZER INC-2012060733

PATIENT
  Age: 40 Year
  Sex: Female

DRUGS (1)
  1. SOMAVERT [Suspect]
     Dosage: 20 MG, 1X/DAY
     Dates: start: 20111201

REACTIONS (2)
  - RASH PRURITIC [None]
  - RASH ERYTHEMATOUS [None]
